FAERS Safety Report 6045740-6 (Version None)
Quarter: 2009Q1

REPORT INFORMATION
  Report Type: 
  Country: None (occurrence: None)
  Receive Date: 20090121
  Receipt Date: 20090115
  Transmission Date: 20090719
  Serious: Yes (Hospitalization, Other)
  Sender: FDA-Public Use
  Company Number: PHHO2009US00861

PATIENT
  Sex: Female
  Weight: 78 kg

DRUGS (8)
  1. CGS 20267 T30748+TAB [Suspect]
     Indication: BREAST CANCER
     Dosage: 2.5 MG
     Route: 048
     Dates: start: 20060901
  2. LISINOPRIL [Concomitant]
  3. SULINDAC [Concomitant]
  4. METOPROLOL TARTRATE [Concomitant]
  5. PAROXETINE HCL [Concomitant]
  6. LIPITOR [Concomitant]
  7. ASPIRIN [Concomitant]
  8. GLYBURIDE [Concomitant]

REACTIONS (6)
  - CSF PROTEIN INCREASED [None]
  - FALL [None]
  - HYPOGLYCAEMIA [None]
  - LEUKOCYTOSIS [None]
  - MENTAL STATUS CHANGES [None]
  - PYREXIA [None]
